FAERS Safety Report 16645899 (Version 3)
Quarter: 2020Q2

REPORT INFORMATION
  Report Type: Spontaneous
  Country: NL (occurrence: NL)
  Receive Date: 20190730
  Receipt Date: 20200623
  Transmission Date: 20200713
  Serious: Yes (Death, Hospitalization, Other)
  Sender: FDA-Public Use
  Company Number: NL-ACTELION-A-CH2019-193484

PATIENT
  Age: 72 Year
  Sex: Male

DRUGS (1)
  1. OPSUMIT [Suspect]
     Active Substance: MACITENTAN
     Indication: PULMONARY ARTERIAL HYPERTENSION
     Dosage: 10 MG, QD
     Route: 048

REACTIONS (6)
  - Condition aggravated [Unknown]
  - Hypotension [Unknown]
  - Syncope [Unknown]
  - Dyspnoea [Unknown]
  - Death [Fatal]
  - Facial bones fracture [Unknown]

NARRATIVE: CASE EVENT DATE: 20190717
